FAERS Safety Report 6443626 (Version 2)
Quarter: 2013Q1

REPORT INFORMATION
  Report Type: Spontaneous
  Country: US (occurrence: US)
  Receive Date: 20071017
  Receipt Date: 20130321
  Transmission Date: 20140127
  Serious: Yes (Congenital Anomaly, Other)
  Sender: FDA-Public Use
  Company Number: US-RB-008269-07

PATIENT
  Age: 0 None
  Sex: Male

DRUGS (2)
  1. SUBUTEX [Suspect]
     Indication: DRUG DEPENDENCE
     Dosage: MOTHER VARIED DOSE DURING PREGNANCY FROM 2-8 MG PER DAY
     Route: 064
     Dates: start: 200703, end: 200708
  2. SUBOXONE [Suspect]
     Indication: DRUG DEPENDENCE
     Route: 064
     Dates: start: 200701, end: 200703

REACTIONS (2)
  - Foetal exposure during pregnancy [Recovered/Resolved]
  - Heart disease congenital [Not Recovered/Not Resolved]
